FAERS Safety Report 9701017 (Version 1)
Quarter: 2013Q4

REPORT INFORMATION
  Report Type: Spontaneous
  Country: US (occurrence: None)
  Receive Date: 20131120
  Receipt Date: 20131120
  Transmission Date: 20140711
  Serious: No
  Sender: FDA-Public Use
  Company Number: None

PATIENT
  Age: 81 None
  Sex: Male
  Weight: 71.67 kg

DRUGS (1)
  1. MIRVASO GEL [Suspect]
     Indication: ROSACEA
     Route: 061
     Dates: start: 201310

REACTIONS (2)
  - Flushing [None]
  - Erythema [None]
